FAERS Safety Report 14448992 (Version 4)
Quarter: 2018Q1

REPORT INFORMATION
  Report Type: Spontaneous
  Country: US (occurrence: US)
  Receive Date: 20180126
  Receipt Date: 20180223
  Transmission Date: 20180509
  Serious: Yes (Hospitalization)
  Sender: FDA-Public Use
  Company Number: US-CELGENEUS-USA-20180108356

PATIENT
  Age: 79 Year
  Sex: Male
  Weight: 59 kg

DRUGS (4)
  1. AREDIA [Concomitant]
     Active Substance: PAMIDRONATE DISODIUM
     Indication: PRODUCT USED FOR UNKNOWN INDICATION
     Route: 065
  2. DEXAMETHASONE. [Concomitant]
     Active Substance: DEXAMETHASONE
     Indication: PLASMA CELL MYELOMA
     Route: 065
  3. POMALYST [Suspect]
     Active Substance: POMALIDOMIDE
     Indication: PLASMA CELL MYELOMA
     Dosage: 4 MILLIGRAM
     Route: 048
     Dates: start: 20171216, end: 20180205
  4. DARATUMUMAB [Concomitant]
     Active Substance: DARATUMUMAB
     Indication: PLASMA CELL MYELOMA
     Route: 041

REACTIONS (12)
  - Pneumothorax [Unknown]
  - Asthenia [Unknown]
  - Dyspnoea [Unknown]
  - Pyrexia [Unknown]
  - Confusional state [Unknown]
  - Dyspnoea [Unknown]
  - Dyspnoea [Unknown]
  - Pneumonia [Unknown]
  - Heart rate irregular [Unknown]
  - Decreased appetite [Unknown]
  - Urinary retention [Unknown]
  - Chills [Unknown]

NARRATIVE: CASE EVENT DATE: 201712
